FAERS Safety Report 4965851-3 (Version None)
Quarter: 2006Q2

REPORT INFORMATION
  Report Type: 
  Country: None (occurrence: None)
  Receive Date: 20060407
  Receipt Date: 20060329
  Transmission Date: 20061013
  Serious: Yes (Death, Hospitalization, Other)
  Sender: FDA-Public Use
  Company Number: PHBS2006BR04633

PATIENT
  Age: 80 Year
  Sex: Female

DRUGS (3)
  1. FEMARA [Suspect]
     Indication: BREAST CANCER METASTATIC
     Dosage: 2.5 MG, QD
     Route: 048
  2. ARIMIDEX [Suspect]
     Indication: BREAST CANCER METASTATIC
  3. XELODA [Suspect]
     Indication: BREAST CANCER METASTATIC

REACTIONS (4)
  - DEATH [None]
  - DIARRHOEA [None]
  - SKIN LESION [None]
  - SKIN NECROSIS [None]
